FAERS Safety Report 12395102 (Version 1)
Quarter: 2016Q2

REPORT INFORMATION
  Report Type: Spontaneous
  Country: JP (occurrence: JP)
  Receive Date: 20160523
  Receipt Date: 20160523
  Transmission Date: 20160815
  Serious: Yes (Life-Threatening)
  Sender: FDA-Public Use
  Company Number: JP-DSJP-DSJ-2012-06345

PATIENT

DRUGS (14)
  1. ARTIST TABLETS 10MG [Suspect]
     Active Substance: CARVEDILOL
     Dosage: 30 MG, QD
     Route: 048
     Dates: start: 20120330, end: 20120330
  2. PRONON [Concomitant]
     Active Substance: PROPAFENONE
     Dosage: 150 MG, TID
     Route: 048
     Dates: end: 20120329
  3. PRONON [Concomitant]
     Active Substance: PROPAFENONE
     Dosage: 1350 MG, QD
     Route: 048
     Dates: start: 20120330, end: 20120330
  4. DOGMATYL [Concomitant]
     Active Substance: SULPIRIDE
     Dosage: UNK UNK, TID
     Route: 048
     Dates: end: 20120329
  5. OLMETEC TABLETS 20MG [Suspect]
     Active Substance: OLMESARTAN MEDOXOMIL
     Dosage: 120 MG, QD
     Route: 048
     Dates: start: 20120330, end: 20120330
  6. CALBLOCK [Suspect]
     Active Substance: AZELNIDIPINE
     Dosage: 48 MG, QD
     Route: 048
     Dates: start: 20120330, end: 20120330
  7. DEPAS [Concomitant]
     Active Substance: ETIZOLAM
     Dosage: 4.5 MG, QD
     Route: 048
     Dates: start: 20120330, end: 20120330
  8. OLMETEC TABLETS 20MG [Suspect]
     Active Substance: OLMESARTAN MEDOXOMIL
     Indication: HYPERTENSION
     Dosage: 40 MG, QD
     Route: 048
     Dates: end: 20120329
  9. CALBLOCK [Suspect]
     Active Substance: AZELNIDIPINE
     Indication: HYPERTENSION
     Dosage: 16 MG, QD
     Route: 048
     Dates: end: 20120329
  10. DOGMATYL [Concomitant]
     Active Substance: SULPIRIDE
     Dosage: UNK UNK, QD
     Route: 048
     Dates: start: 20120330, end: 20120330
  11. BAYASPIRIN [Concomitant]
     Active Substance: ASPIRIN
     Dosage: 100 MG, QD
     Route: 048
     Dates: end: 20120329
  12. DEPAS [Concomitant]
     Active Substance: ETIZOLAM
     Dosage: 0.5 MG, TID
     Route: 048
     Dates: end: 20120329
  13. ARTIST TABLETS 10MG [Suspect]
     Active Substance: CARVEDILOL
     Indication: HYPERTENSION
     Dosage: 10 MG, QD
     Route: 048
     Dates: end: 20120329
  14. BAYASPIRIN [Concomitant]
     Active Substance: ASPIRIN
     Dosage: 300 MG, QD
     Route: 048
     Dates: start: 20120330, end: 20120330

REACTIONS (8)
  - Blood pressure systolic increased [None]
  - Coma [None]
  - Head injury [None]
  - Bradycardia [Recovered/Resolved]
  - Accidental overdose [Unknown]
  - Haemorrhage [None]
  - Cardiac arrest [Recovered/Resolved]
  - Fall [None]

NARRATIVE: CASE EVENT DATE: 20120330
